FAERS Safety Report 20736107 (Version 1)
Quarter: 2022Q2

REPORT INFORMATION
  Report Type: Other
  Country: US (occurrence: None)
  Receive Date: 20220421
  Receipt Date: 20220421
  Transmission Date: 20220721
  Serious: Yes (Other)
  Sender: FDA-Public Use
  Company Number: US-ROCHE-2440095

PATIENT
  Age: 65 Year
  Sex: Female
  Weight: 68.100 kg

DRUGS (15)
  1. ACTEMRA [Suspect]
     Active Substance: TOCILIZUMAB
     Indication: Rheumatoid arthritis
     Route: 042
     Dates: start: 201901, end: 201906
  2. RITUXAN [Suspect]
     Active Substance: RITUXIMAB
     Indication: Rheumatoid arthritis
     Dosage: VIAL, INFUSE 1000  MG ON DAY 1 AND DAY 15
     Route: 041
  3. PREDNISONE [Concomitant]
     Active Substance: PREDNISONE
  4. ATORVASTATIN [Concomitant]
     Active Substance: ATORVASTATIN
     Dosage: 1 PO BEDTIME
     Route: 048
  5. AVASTIN [Concomitant]
     Active Substance: BEVACIZUMAB
     Dosage: EVERY 8 TO 9 WEEKS
     Route: 031
  6. CYCLOBENZAPRINE [Concomitant]
     Active Substance: CYCLOBENZAPRINE
     Route: 048
  7. FENTANYL [Concomitant]
     Active Substance: FENTANYL
     Route: 062
  8. JARDIANCE [Concomitant]
     Active Substance: EMPAGLIFLOZIN
     Dosage: PO IN AM BEFORE EATING BREAKFAST
     Route: 048
  9. LEVOTHYROXINE [Concomitant]
     Active Substance: LEVOTHYROXINE
     Route: 048
  10. LOSARTAN [Concomitant]
     Active Substance: LOSARTAN
     Route: 048
  11. METFORMIN [Concomitant]
     Active Substance: METFORMIN HYDROCHLORIDE
     Route: 048
  12. NATEGLINIDE [Concomitant]
     Active Substance: NATEGLINIDE
     Route: 048
  13. OMEPRAZOLE [Concomitant]
     Active Substance: OMEPRAZOLE
     Route: 048
  14. POTASSIUM [Concomitant]
     Active Substance: POTASSIUM
  15. VITAMIN D3 [Concomitant]
     Active Substance: CHOLECALCIFEROL
     Route: 048

REACTIONS (35)
  - Large intestine perforation [Unknown]
  - Megacolon [Unknown]
  - Cholelithotomy [Unknown]
  - Liver disorder [Unknown]
  - Abdominal pain [Unknown]
  - Rheumatoid arthritis [Unknown]
  - Blood potassium decreased [Unknown]
  - Stomatitis [Unknown]
  - Fatigue [Unknown]
  - Abdominal discomfort [Unknown]
  - Endometrial cancer [Unknown]
  - Weight decreased [Unknown]
  - Muscle spasms [Unknown]
  - Hepatic cirrhosis [Unknown]
  - Portal hypertension [Unknown]
  - Thrombosis [Unknown]
  - Vein disorder [Unknown]
  - Diabetes mellitus [Unknown]
  - Hypothyroidism [Unknown]
  - Acquired oesophageal web [Unknown]
  - Sleep apnoea syndrome [Unknown]
  - Macular degeneration [Unknown]
  - Dry eye [Unknown]
  - Tooth fracture [Unknown]
  - Alopecia [Unknown]
  - Muscle spasms [Unknown]
  - Hyperlipidaemia [Unknown]
  - Neovascular age-related macular degeneration [Unknown]
  - Upper respiratory tract infection [Unknown]
  - Cardiac murmur [Unknown]
  - Hypokalaemia [Unknown]
  - Neck pain [Unknown]
  - Haemorrhoidal haemorrhage [Unknown]
  - Dysphonia [Unknown]
  - Coronavirus infection [Unknown]

NARRATIVE: CASE EVENT DATE: 20190601
